FAERS Safety Report 5535828-8 (Version None)
Quarter: 2007Q4

REPORT INFORMATION
  Report Type: 
  Country: None (occurrence: None)
  Receive Date: 20071206
  Receipt Date: 20071130
  Transmission Date: 20080405
  Serious: Yes (Death)
  Sender: FDA-Public Use
  Company Number: B0498440A

PATIENT
  Age: 82 Year
  Sex: Female

DRUGS (7)
  1. AVANDIA [Suspect]
     Indication: DRUG USE FOR UNKNOWN INDICATION
     Route: 048
  2. TRAMADOL HCL [Concomitant]
  3. COVERSYL [Concomitant]
  4. METOPROLOL [Concomitant]
  5. METFORMIN HCL [Concomitant]
  6. NEXIUM [Concomitant]
  7. ZOCOR [Concomitant]

REACTIONS (1)
  - MYOCARDIAL INFARCTION [None]
